FAERS Safety Report 4508697-2 (Version None)
Quarter: 2004Q4

REPORT INFORMATION
  Report Type: 
  Country: None (occurrence: None)
  Receive Date: 20041122
  Receipt Date: 20041122
  Transmission Date: 20050328
  Serious: Yes (Life-Threatening)
  Sender: FDA-Public Use
  Company Number: None

PATIENT
  Age: 36 Year
  Sex: Male
  Weight: 8 kg

DRUGS (1)
  1. ACCUTANE [Suspect]

REACTIONS (8)
  - ANXIETY [None]
  - DEHYDRATION [None]
  - FEELING ABNORMAL [None]
  - MENTAL DISORDER [None]
  - PAIN [None]
  - RENAL DISORDER [None]
  - RENAL PAIN [None]
  - VITAMIN C DEFICIENCY [None]
